FAERS Safety Report 7047492-X (Version None)
Quarter: 2010Q4

REPORT INFORMATION
  Report Type: 
  Country: None (occurrence: None)
  Receive Date: 20101014
  Receipt Date: 20101014
  Transmission Date: 20110411
  Serious: Yes (Hospitalization)
  Sender: FDA-Public Use
  Company Number: None

PATIENT
  Sex: Male
  Weight: 78.8 kg

DRUGS (5)
  1. CYTARABINE [Suspect]
     Dosage: 568 MG
  2. MERCAPTOPURINE [Suspect]
     Dosage: 1400 MG
  3. METHOTREXATE [Suspect]
     Dosage: 30 MG
  4. VINCRISTINE SULFATE [Suspect]
     Dosage: 2 MG
  5. CYCLOPHOSPHAMIDE [Suspect]
     Dosage: 1890 MG

REACTIONS (4)
  - CHILLS [None]
  - MALAISE [None]
  - NEUTROPHIL COUNT ABNORMAL [None]
  - PRESYNCOPE [None]
